FAERS Safety Report 8418356-1 (Version None)
Quarter: 2012Q2

REPORT INFORMATION
  Report Type: 
  Country: None (occurrence: None)
  Receive Date: 20120607
  Receipt Date: 20120604
  Transmission Date: 20120825
  Serious: Yes (Hospitalization, Other)
  Sender: FDA-Public Use
  Company Number: US-PFIZER INC-2012015514

PATIENT
  Sex: Male

DRUGS (5)
  1. ENALAPRIL [Concomitant]
     Indication: BLOOD PRESSURE INCREASED
     Dosage: UNK
     Dates: start: 20100204, end: 20100701
  2. NEURONTIN [Concomitant]
     Indication: PAIN
     Dosage: UNK
     Dates: start: 20100204, end: 20100608
  3. CHANTIX [Suspect]
     Indication: SMOKING CESSATION THERAPY
     Dosage: 0.5 MG, UNK
     Route: 048
     Dates: start: 20100427, end: 20100513
  4. SIMVASTATIN [Concomitant]
     Indication: BLOOD CHOLESTEROL INCREASED
     Dosage: UNK
     Dates: start: 20100204, end: 20100713
  5. HYDROCHLOROTHIAZIDE [Concomitant]
     Indication: BLOOD PRESSURE INCREASED
     Dosage: UNK
     Dates: start: 20100201, end: 20100701

REACTIONS (6)
  - SUICIDE ATTEMPT [None]
  - INJURY [None]
  - MENTAL DISORDER [None]
  - AGGRESSION [None]
  - ABNORMAL BEHAVIOUR [None]
  - EMOTIONAL DISTRESS [None]
